FAERS Safety Report 10093021 (Version 1)
Quarter: 2014Q2

REPORT INFORMATION
  Report Type: Spontaneous
  Country: US (occurrence: US)
  Receive Date: 20140421
  Receipt Date: 20140421
  Transmission Date: 20141212
  Serious: No
  Sender: FDA-Public Use
  Company Number: US-SANOFI-AVENTIS-2013SA092626

PATIENT
  Age: 56 Year
  Sex: Female
  Weight: 106.59 kg

DRUGS (3)
  1. ALLEGRA [Suspect]
     Indication: ASTHMA
     Route: 048
  2. SINGULAIR [Concomitant]
  3. FLUTICASONE PROPIONATE [Concomitant]
     Indication: ASTHMA
     Route: 065

REACTIONS (3)
  - Somnolence [Unknown]
  - Headache [Unknown]
  - Underdose [Unknown]
